FAERS Safety Report 9185445 (Version 1)
Quarter: 2012Q4

REPORT INFORMATION
  Report Type: 
  Country: US (occurrence: US)
  Receive Date: 20121031
  Receipt Date: 20121031
  Transmission Date: 20130627
  Serious: No
  Sender: FDA-Public Use
  Company Number: US-009507513-1210USA008328

PATIENT
  Age: 72 None
  Sex: Female

DRUGS (1)
  1. NASONEX [Suspect]
     Indication: UPPER-AIRWAY COUGH SYNDROME
     Dosage: 2 sprays, qd
     Route: 045
     Dates: end: 20121013

REACTIONS (4)
  - Dizziness [Recovering/Resolving]
  - Vertigo [Recovering/Resolving]
  - Vomiting [Recovering/Resolving]
  - Nasal inflammation [Recovering/Resolving]
